FAERS Safety Report 6978346-2 (Version None)
Quarter: 2010Q3

REPORT INFORMATION
  Report Type: 
  Country: None (occurrence: None)
  Receive Date: 20100913
  Receipt Date: 20100831
  Transmission Date: 20110219
  Serious: Yes (Hospitalization, Other)
  Sender: FDA-Public Use
  Company Number: PHHY2010JP56543

PATIENT
  Age: 22 Year
  Sex: Female
  Weight: 35.4 kg

DRUGS (21)
  1. CYCLOSPORINE [Suspect]
     Indication: LUNG TRANSPLANT
     Dosage: 80 MG, BID
  2. CYCLOSPORINE [Suspect]
     Dosage: 80 MG
  3. CYCLOSPORINE [Suspect]
     Dosage: 50 MG
  4. MYCOPHENOLATE MOFETIL [Concomitant]
     Dosage: 750 MG/DAY
  5. MYCOPHENOLATE MOFETIL [Concomitant]
     Dosage: 500 MG/DAY
  6. METILDIGOXIN [Concomitant]
     Dosage: 0.1 MG/DAY
  7. ETIZOLAM [Concomitant]
     Dosage: 1 MG/DAY
  8. PREDNISOLONE [Concomitant]
     Dosage: ALTERNATIVE DOSES OF 7.5 MG/DAY AND 2.5 MG/DAY
  9. SULFAMETHOXAZOLE AND TRIMETHOPRIM [Concomitant]
     Dosage: 1 G/DAY
  10. AMPHOTERICIN B [Concomitant]
     Dosage: 1.2 G/DAY
  11. ACYCLOVIR [Concomitant]
     Dosage: 200 MG/DAY
  12. LANSOPRAZOLE [Concomitant]
     Dosage: 60 MG/DAY
  13. ATROPINE SULFATE [Concomitant]
     Dosage: 0.3 MG
  14. PETHIDINE HYDROCHLORIDE [Concomitant]
     Dosage: 30 MG
     Route: 030
  15. HYDROCORTISONE SODIUM SUCCINATE [Concomitant]
     Dosage: 100 MG
     Route: 042
  16. MIDAZOLAM HCL [Concomitant]
     Dosage: 2 MG
  17. PROPOFOL [Concomitant]
     Dosage: 40 MG
  18. REMIFENTANIL [Concomitant]
     Dosage: 0.25 UG/KG/MIN
  19. SEVOFLURANE [Concomitant]
     Dosage: 03 PERCENT
  20. ROCURONIUM BROMIDE [Concomitant]
     Dosage: 20 MG
  21. CEFAZOLIN SODIUM [Concomitant]
     Dosage: 600 MG
     Route: 042

REACTIONS (22)
  - BLOOD CREATININE INCREASED [None]
  - BLOOD PRESSURE DECREASED [None]
  - CATHETER REMOVAL [None]
  - DEHYDRATION [None]
  - DIARRHOEA [None]
  - DYSPNOEA [None]
  - ENTEROCOLITIS [None]
  - GASTROENTERITIS [None]
  - GASTROINTESTINAL TUBE INSERTION [None]
  - GLOSSECTOMY [None]
  - HYPOGLYCAEMIA [None]
  - HYPOPHAGIA [None]
  - MALNUTRITION [None]
  - MECHANICAL VENTILATION [None]
  - METABOLIC ACIDOSIS [None]
  - NAUSEA [None]
  - RESPIRATORY FAILURE [None]
  - TACHYCARDIA [None]
  - TONGUE NEOPLASM MALIGNANT STAGE UNSPECIFIED [None]
  - URINE KETONE BODY PRESENT [None]
  - VITAL CAPACITY DECREASED [None]
  - WHITE BLOOD CELL COUNT INCREASED [None]
